FAERS Safety Report 10794034 (Version 7)
Quarter: 2015Q3

REPORT INFORMATION
  Report Type: Report from Study
  Country: DE (occurrence: DE)
  Receive Date: 20150213
  Receipt Date: 20150826
  Transmission Date: 20151125
  Serious: Yes (Death, Hospitalization)
  Sender: FDA-Public Use
  Company Number: DE-BAYER-2015-019938

PATIENT
  Age: 70 Year
  Sex: Female
  Weight: 55 kg

DRUGS (4)
  1. LOPERAMID AL [Concomitant]
     Indication: COLORECTAL CANCER METASTATIC
     Dosage: UNK
     Dates: start: 20150116, end: 20150205
  2. STIVARGA [Suspect]
     Active Substance: REGORAFENIB
     Indication: COLORECTAL CANCER METASTATIC
     Dosage: 80 MG, QD
     Route: 048
     Dates: start: 20150116
  3. NOVAMINSULFON [Concomitant]
     Active Substance: METAMIZOLE
     Indication: COLORECTAL CANCER METASTATIC
     Dosage: 500 MG, QD
     Dates: start: 20150116, end: 20150207
  4. DEXAMETHASONE [DEXAMETHASONE] [Concomitant]
     Dosage: TOTAL DAILY DOSE 4 MG
     Dates: start: 20150123

REACTIONS (3)
  - Death [Fatal]
  - Abdominal pain [Unknown]
  - Acute abdomen [Unknown]

NARRATIVE: CASE EVENT DATE: 20150205
